FAERS Safety Report 5842964-5 (Version None)
Quarter: 2008Q3

REPORT INFORMATION
  Report Type: 
  Country: None (occurrence: None)
  Receive Date: 20080811
  Receipt Date: 20080730
  Transmission Date: 20090109
  Serious: Yes (Hospitalization)
  Sender: FDA-Public Use
  Company Number: TRP_05839_2008

PATIENT
  Sex: Male
  Weight: 59.8748 kg

DRUGS (15)
  1. INFERGEN [Suspect]
     Indication: HEPATITIS C
     Dosage: (15 ?G QD SUBCUTANEOUS)
     Route: 058
     Dates: start: 20080324, end: 20080601
  2. RIBAVIRIN [Suspect]
     Indication: HEPATITIS C
     Dosage: (1 DF BID ORAL)
     Route: 048
     Dates: start: 20080324, end: 20080601
  3. SEROQUEL [Concomitant]
  4. NEXIUM [Concomitant]
  5. METOPROLOL TARTRATE [Concomitant]
  6. NAPROXEN [Concomitant]
  7. MUCINEX [Concomitant]
  8. NITROGLYCERIN [Concomitant]
  9. NORCO [Concomitant]
  10. ASPIRIN [Concomitant]
  11. FOLIC ACID [Concomitant]
  12. VITAMIN B-COMPLEX /00282501/ [Concomitant]
  13. RESTORIL /00393701/ [Concomitant]
  14. CENTRUM SILVER /01292501/ [Concomitant]
  15. XANAX [Concomitant]

REACTIONS (12)
  - ALOPECIA [None]
  - AMNESIA [None]
  - ARTHRALGIA [None]
  - BACK PAIN [None]
  - DEHYDRATION [None]
  - FATIGUE [None]
  - INSOMNIA [None]
  - LOSS OF CONSCIOUSNESS [None]
  - PNEUMONIA [None]
  - TONGUE COATED [None]
  - TREMOR [None]
  - WHITE BLOOD CELL COUNT DECREASED [None]
